FAERS Safety Report 12683029 (Version 1)
Quarter: 2016Q3

REPORT INFORMATION
  Report Type: Spontaneous
  Country: US (occurrence: US)
  Receive Date: 20160825
  Receipt Date: 20160825
  Transmission Date: 20161109
  Serious: No
  Sender: FDA-Public Use
  Company Number: US-BAYER-2016-164569

PATIENT
  Age: 63 Year
  Sex: Female
  Weight: 29.47 kg

DRUGS (1)
  1. MIRALAX [Suspect]
     Active Substance: POLYETHYLENE GLYCOL 3350
     Indication: CONSTIPATION
     Dosage: 1 TEASPOON AT 6PM AND ANOTHER DOSE OF 1 TEASPOON AT 10PM
     Route: 048
     Dates: start: 20160822

REACTIONS (1)
  - Product use issue [None]

NARRATIVE: CASE EVENT DATE: 20160822
